FAERS Safety Report 15293890 (Version 1)
Quarter: 2018Q3

REPORT INFORMATION
  Report Type: Spontaneous
  Country: US (occurrence: US)
  Receive Date: 20180807
  Receipt Date: 20180807
  Transmission Date: 20181010
  Serious: Yes (Hospitalization)
  Sender: FDA-Public Use
  Company Number: None

PATIENT
  Age: 90 Year
  Sex: Female

DRUGS (10)
  1. TUMS [Concomitant]
     Active Substance: CALCIUM CARBONATE
  2. CAPECITABINE 500 MG TAB TEVA PHARMACEUTICALS [Suspect]
     Active Substance: CAPECITABINE
     Indication: NEOPLASM MALIGNANT
     Route: 048
     Dates: start: 20180801
  3. IPRATROPIUM [Concomitant]
     Active Substance: IPRATROPIUM
  4. LEVOTHYROXINE. [Concomitant]
     Active Substance: LEVOTHYROXINE
  5. MAGNESIUM [Concomitant]
     Active Substance: MAGNESIUM
  6. CLINDAMYCIN. [Concomitant]
     Active Substance: CLINDAMYCIN
  7. BENICAR [Concomitant]
     Active Substance: OLMESARTAN MEDOXOMIL
  8. BENEFIBER [Concomitant]
     Active Substance: STARCH, WHEAT
  9. FLOVENT [Concomitant]
     Active Substance: FLUTICASONE PROPIONATE
  10. LETROZOLE. [Concomitant]
     Active Substance: LETROZOLE

REACTIONS (1)
  - Pancreatitis [None]
